FAERS Safety Report 8879252 (Version 1)
Quarter: 2012Q4

REPORT INFORMATION
  Report Type: 
  Country: NL (occurrence: NL)
  Receive Date: 20121031
  Receipt Date: 20121031
  Transmission Date: 20130627
  Serious: Yes (Other)
  Sender: FDA-Public Use
  Company Number: NL-BAXTER-2012BAX021089

PATIENT
  Age: 70 Year
  Sex: Female

DRUGS (2)
  1. KIOVIG 100 MG/ML SOLUTION FOR INFUSION INTRAVENOUS USE VIAL (GLASS) 30 [Suspect]
     Indication: CHRONIC INFLAMMATORY DEMYELINATING POLYRADICULONEUROPATHY
     Route: 042
  2. KIOVIG 100 MG/ML SOLUTION FOR INFUSION INTRAVENOUS USE VIAL (GLASS) 30 [Suspect]
     Indication: INTENTIONAL USE FOR UNLABELED INDICATION

REACTIONS (1)
  - Thrombocytopenia [Unknown]
